FAERS Safety Report 5753105-7 (Version None)
Quarter: 2008Q2

REPORT INFORMATION
  Report Type: 
  Country: None (occurrence: None)
  Receive Date: 20080529
  Receipt Date: 20080526
  Transmission Date: 20081010
  Serious: Yes (Other)
  Sender: FDA-Public Use
  Company Number: GB-RANBAXY-2008RR-15440

PATIENT

DRUGS (1)
  1. SIMVASTATIN 5MG TABLETS [Suspect]
     Indication: CARDIOVASCULAR DISORDER
     Dosage: 5 MG, QD
     Route: 048

REACTIONS (3)
  - ACUTE RESPIRATORY DISTRESS SYNDROME [None]
  - LOWER RESPIRATORY TRACT INFECTION [None]
  - THROMBOCYTOPENIC PURPURA [None]
